FAERS Safety Report 7798522-9 (Version None)
Quarter: 2011Q4

REPORT INFORMATION
  Report Type: 
  Country: None (occurrence: None)
  Receive Date: 20111005
  Receipt Date: 20110926
  Transmission Date: 20120403
  Serious: Yes (Other)
  Sender: FDA-Public Use
  Company Number: US-ASTRAZENECA-2011SE57697

PATIENT
  Age: 61 Year
  Sex: Female
  Weight: 77.1 kg

DRUGS (4)
  1. SYMBICORT [Suspect]
     Indication: DYSPNOEA
     Dosage: 160-4.5 MCG, TWO TIMES A DAY
     Route: 055
     Dates: start: 20080101
  2. LORAZEPAM [Concomitant]
     Indication: NERVOUSNESS
     Route: 048
     Dates: start: 20080101
  3. SEROQUEL XR [Suspect]
     Indication: DEPRESSION
     Route: 048
     Dates: start: 20100110, end: 20100401
  4. CITALOPRAM HYDROBROMIDE [Concomitant]
     Indication: DEPRESSION
     Route: 048
     Dates: start: 20050101

REACTIONS (11)
  - CONFUSIONAL STATE [None]
  - MALAISE [None]
  - INSOMNIA [None]
  - DYSPNOEA [None]
  - DEPRESSION [None]
  - OFF LABEL USE [None]
  - TACHYPHRENIA [None]
  - MENTAL IMPAIRMENT [None]
  - DRY THROAT [None]
  - SUICIDAL IDEATION [None]
  - DRY MOUTH [None]
